FAERS Safety Report 4654564-3 (Version None)
Quarter: 2005Q2

REPORT INFORMATION
  Report Type: 
  Country: None (occurrence: None)
  Receive Date: 20050503
  Receipt Date: 20050503
  Transmission Date: 20051028
  Serious: Yes (Hospitalization)
  Sender: FDA-Public Use
  Company Number: None

PATIENT
  Sex: Male
  Weight: 101.3 kg

DRUGS (11)
  1. ZYPREXA ZYDIS [Suspect]
     Indication: AGITATION
     Dosage: 5MG   TID   ORAL
     Route: 048
     Dates: start: 20050419, end: 20050428
  2. REMEON [Concomitant]
  3. AARICEPT [Concomitant]
  4. LISINOPRIL [Concomitant]
  5. LORAZEPAM [Concomitant]
  6. PREVACID [Concomitant]
  7. ASPIRIN [Concomitant]
  8. PLAVIX [Concomitant]
  9. TENORMIN [Concomitant]
  10. DEPAKOTE [Concomitant]
  11. RISPERDAL [Concomitant]

REACTIONS (6)
  - BLOOD CREATINE PHOSPHOKINASE INCREASED [None]
  - LOSS OF CONSCIOUSNESS [None]
  - MENTAL STATUS CHANGES [None]
  - MIOSIS [None]
  - MUSCLE RIGIDITY [None]
  - PYREXIA [None]
